FAERS Safety Report 6395851-0 (Version None)
Quarter: 2009Q4

REPORT INFORMATION
  Report Type: 
  Country: None (occurrence: None)
  Receive Date: 20091009
  Receipt Date: 20090803
  Transmission Date: 20100525
  Serious: No
  Sender: FDA-Public Use
  Company Number: A0797564A

PATIENT
  Age: 56 Year
  Sex: Female

DRUGS (2)
  1. TYKERB [Suspect]
     Indication: DRUG USE FOR UNKNOWN INDICATION
     Dosage: 4TAB IN THE MORNING
  2. HERCEPTIN [Concomitant]
     Route: 042

REACTIONS (1)
  - DIARRHOEA [None]
